FAERS Safety Report 18417314 (Version 1)
Quarter: 2020Q4

REPORT INFORMATION
  Report Type: Spontaneous
  Country: US (occurrence: US)
  Receive Date: 20201022
  Receipt Date: 20201022
  Transmission Date: 20210114
  Serious: No
  Sender: FDA-Public Use
  Company Number: US-SEATTLE GENETICS-2020SGN03427

PATIENT
  Sex: Female

DRUGS (1)
  1. TUKYSA [Suspect]
     Active Substance: TUCATINIB
     Indication: PRODUCT USED FOR UNKNOWN INDICATION
     Dosage: 150 MG, BID
     Route: 048
     Dates: start: 20200727

REACTIONS (9)
  - Decreased appetite [Unknown]
  - Unevaluable event [Unknown]
  - Palpitations [Unknown]
  - Hyperhidrosis [Unknown]
  - Anxiety [Unknown]
  - Insomnia [Unknown]
  - Dizziness [Unknown]
  - Panic disorder [Unknown]
  - Dyspnoea [Unknown]
